FAERS Safety Report 10865652 (Version 1)
Quarter: 2015Q1

REPORT INFORMATION
  Report Type: Spontaneous
  Country: US (occurrence: US)
  Receive Date: 20150224
  Receipt Date: 20150224
  Transmission Date: 20150721
  Serious: No
  Sender: FDA-Public Use
  Company Number: US-MYLANLABS-2014S1018028

PATIENT
  Age: 14 Year
  Sex: Male

DRUGS (4)
  1. AMNESTEEM [Suspect]
     Active Substance: ISOTRETINOIN
     Indication: ACNE
     Dosage: 10 MG, QD
     Route: 048
     Dates: start: 20140616, end: 20140717
  2. AMNESTEEM [Suspect]
     Active Substance: ISOTRETINOIN
     Indication: ACNE
  3. CLONIDINE. [Concomitant]
     Active Substance: CLONIDINE
     Dosage: UNK
     Route: 048
  4. AMNESTEEM [Suspect]
     Active Substance: ISOTRETINOIN
     Dosage: 20 MG, QD
     Route: 048
     Dates: start: 20140616, end: 20140717

REACTIONS (1)
  - Lipids increased [Recovered/Resolved]

NARRATIVE: CASE EVENT DATE: 20140717
